FAERS Safety Report 17864619 (Version 3)
Quarter: 2020Q2

REPORT INFORMATION
  Report Type: Spontaneous
  Country: US (occurrence: US)
  Receive Date: 20200605
  Receipt Date: 20200619
  Transmission Date: 20200714
  Serious: No
  Sender: FDA-Public Use
  Company Number: US-GW PHARMA-202006USGW01995

PATIENT

DRUGS (5)
  1. EPIDIOLEX [Suspect]
     Active Substance: CANNABIDIOL
     Indication: LENNOX-GASTAUT SYNDROME
     Dosage: UNK
     Route: 048
     Dates: start: 20191001
  2. EPIDIOLEX [Interacting]
     Active Substance: CANNABIDIOL
     Dosage: 350 MILLIGRAM, BID
     Route: 048
  3. KLONOPIN [Interacting]
     Active Substance: CLONAZEPAM
     Indication: PRODUCT USED FOR UNKNOWN INDICATION
     Dosage: 0.5 MG
     Route: 048
  4. DILANTIN [Suspect]
     Active Substance: PHENYTOIN
     Indication: PRODUCT USED FOR UNKNOWN INDICATION
     Dosage: UNK
     Route: 065
  5. EPIDIOLEX [Interacting]
     Active Substance: CANNABIDIOL
     Dosage: 300 MILLIGRAM, BID (MORNING AND NIGHT)
     Route: 048

REACTIONS (6)
  - Drug interaction [Unknown]
  - Lethargy [Unknown]
  - Somnolence [Unknown]
  - Memory impairment [Unknown]
  - Cognitive disorder [Unknown]
  - Confusional state [Unknown]

NARRATIVE: CASE EVENT DATE: 20190913
